FAERS Safety Report 8420388-4 (Version None)
Quarter: 2012Q2

REPORT INFORMATION
  Report Type: 
  Country: None (occurrence: None)
  Receive Date: 20120607
  Receipt Date: 20120507
  Transmission Date: 20120825
  Serious: Yes (Hospitalization)
  Sender: FDA-Public Use
  Company Number: UA-MERCK-1205USA01914

PATIENT
  Age: 61 Year
  Sex: Female

DRUGS (7)
  1. ZOVIRAX [Suspect]
     Indication: ORAL HERPES
     Route: 042
     Dates: start: 20120220, end: 20120220
  2. DAUNORUBICIN HYDROCHLORIDE [Concomitant]
     Indication: ACUTE MYELOID LEUKAEMIA
     Route: 042
     Dates: start: 20100826, end: 20120229
  3. VANCOMYCIN [Suspect]
     Indication: PROPHYLAXIS
     Route: 042
     Dates: start: 20120202, end: 20120223
  4. CIPROFLOXACIN HCL [Suspect]
     Indication: PROPHYLAXIS
     Route: 042
     Dates: start: 20120202, end: 20120223
  5. MYLOTARG [Concomitant]
     Indication: ACUTE MYELOID LEUKAEMIA
     Route: 042
     Dates: end: 20120229
  6. CYTARABINE [Concomitant]
     Indication: ACUTE MYELOID LEUKAEMIA
     Route: 058
     Dates: start: 20101026
  7. PRIMAXIN [Suspect]
     Route: 042
     Dates: start: 20120202, end: 20120223

REACTIONS (1)
  - ACUTE GENERALISED EXANTHEMATOUS PUSTULOSIS [None]
